FAERS Safety Report 14779995 (Version 1)
Quarter: 2018Q2

REPORT INFORMATION
  Report Type: Report from Study
  Country: CH (occurrence: CH)
  Receive Date: 20180419
  Receipt Date: 20180419
  Transmission Date: 20180711
  Serious: Yes (Other)
  Sender: FDA-Public Use
  Company Number: CH-TEVA-2018-CH-882042

PATIENT
  Age: 15 Year

DRUGS (4)
  1. CEFDINIR. [Interacting]
     Active Substance: CEFDINIR
     Indication: PAIN
     Route: 065
  2. TRAMADOL. [Suspect]
     Active Substance: TRAMADOL
     Indication: PAIN
     Route: 065
  3. CHLORAMPHENICOL [Suspect]
     Active Substance: CHLORAMPHENICOL
     Indication: PAIN
     Route: 065
  4. METHADONE [Suspect]
     Active Substance: METHADONE HYDROCHLORIDE
     Indication: PAIN
     Route: 065

REACTIONS (14)
  - Acidosis [Unknown]
  - Seizure [Unknown]
  - Toxicity to various agents [Unknown]
  - Respiratory depression [Unknown]
  - Bradycardia [Unknown]
  - Somnolence [Unknown]
  - Blood potassium decreased [Unknown]
  - Lethargy [Unknown]
  - Hypotension [Unknown]
  - Blood pH increased [Unknown]
  - Depressed level of consciousness [Unknown]
  - Abnormal behaviour [Unknown]
  - Drug interaction [Unknown]
  - Overdose [Unknown]
